FAERS Safety Report 7997938-5 (Version None)
Quarter: 2011Q4

REPORT INFORMATION
  Report Type: 
  Country: None (occurrence: None)
  Receive Date: 20111221
  Receipt Date: 20111212
  Transmission Date: 20120403
  Serious: Yes (Other)
  Sender: FDA-Public Use
  Company Number: US-NOVOPROD-341232

PATIENT

DRUGS (2)
  1. VAGIFEM [Suspect]
     Indication: PRODUCT USED FOR UNKNOWN INDICATION
     Dosage: 10 A?G, UNK
     Route: 067
     Dates: start: 20111206, end: 20111210
  2. LEVOTHYROXINE SODIUM [Concomitant]
     Indication: HYPOTHYROIDISM

REACTIONS (7)
  - DEPRESSED MOOD [None]
  - HEADACHE [None]
  - FEELING COLD [None]
  - IRRITABILITY [None]
  - IMPATIENCE [None]
  - NAUSEA [None]
  - SUICIDAL IDEATION [None]
